FAERS Safety Report 20848058 (Version 1)
Quarter: 2022Q2

REPORT INFORMATION
  Report Type: Spontaneous
  Country: US (occurrence: None)
  Receive Date: 20220518
  Receipt Date: 20220518
  Transmission Date: 20220721
  Serious: Yes (Death)
  Sender: FDA-Public Use
  Company Number: None

PATIENT
  Age: 41 Year
  Sex: Male
  Weight: 49.9 kg

DRUGS (4)
  1. ONDANSETRON [Suspect]
     Active Substance: ONDANSETRON
     Indication: Malignant neoplasm of thymus
     Dosage: FREQUENCY : EVERY 6 HOURS;?
     Route: 048
     Dates: start: 202203
  2. LENVIMA [Concomitant]
     Active Substance: LENVATINIB
  3. PEROCET [Concomitant]
  4. TRAMADOL [Concomitant]
     Active Substance: TRAMADOL

REACTIONS (1)
  - Death [None]
